FAERS Safety Report 5534034-0 (Version None)
Quarter: 2007Q4

REPORT INFORMATION
  Report Type: 
  Country: None (occurrence: None)
  Receive Date: 20071205
  Receipt Date: 20071130
  Transmission Date: 20080405
  Serious: Yes (Hospitalization)
  Sender: FDA-Public Use
  Company Number: PHNU2007DE04020

PATIENT
  Age: 73 Year
  Sex: Female

DRUGS (1)
  1. CORDINATE [Suspect]
     Dates: start: 20071101

REACTIONS (1)
  - ANGINA PECTORIS [None]
